FAERS Safety Report 5384164-1 (Version None)
Quarter: 2007Q3

REPORT INFORMATION
  Report Type: 
  Country: None (occurrence: None)
  Receive Date: 20070711
  Receipt Date: 20070702
  Transmission Date: 20080115
  Serious: Yes (Hospitalization)
  Sender: FDA-Public Use
  Company Number: HQWYE319323MAY07

PATIENT
  Sex: Female
  Weight: 71.8 kg

DRUGS (19)
  1. MYLOTARG [Suspect]
     Indication: ACUTE MYELOID LEUKAEMIA
     Dosage: 11 MG TOTAL DOSE ADMINISTERED
     Route: 042
     Dates: start: 20070402, end: 20070402
  2. CYTARABINE [Suspect]
     Indication: ACUTE MYELOID LEUKAEMIA
     Dosage: 177 MG TOTAL DOSE ADMINISTERED
     Route: 042
     Dates: start: 20070330, end: 20070405
  3. COMPAZINE [Concomitant]
     Dosage: 10 MG
     Route: 048
     Dates: start: 20070419, end: 20070422
  4. DEXAMETHASONE 0.5MG TAB [Concomitant]
     Dosage: 10 MG BID
     Route: 042
     Dates: start: 20070421
  5. BENADRYL [Concomitant]
     Dosage: 50 MG
     Route: 048
     Dates: start: 20070402
  6. MORPHINE [Concomitant]
     Dosage: 2 MG
     Route: 042
     Dates: start: 20070410, end: 20070422
  7. LORAZEPAM [Concomitant]
     Dosage: 1 MG
     Route: 042
     Dates: start: 20070420, end: 20070422
  8. LISINOPRIL [Concomitant]
     Dosage: 5 MG DAILY
     Dates: start: 20070402, end: 20070421
  9. AMBIEN [Concomitant]
     Dosage: 5 MG
     Route: 048
     Dates: start: 20070402, end: 20070421
  10. NEXIUM [Concomitant]
     Dosage: 40 MG
     Dates: start: 20070401
  11. INSULIN [Concomitant]
     Dosage: SLIDING SCALE
     Dates: start: 20070329, end: 20070422
  12. VORICONAZOLE [Concomitant]
  13. K-DUR 10 [Concomitant]
     Dosage: 100 MEQ
     Dates: start: 20070416
  14. LOPRESSOR [Concomitant]
  15. FOLATE SODIUM [Concomitant]
     Dosage: 1 MG
     Route: 048
     Dates: start: 20070331, end: 20070422
  16. LORAZEPAM [Concomitant]
     Dosage: 1 MG
     Route: 042
     Dates: start: 20070420, end: 20070422
  17. LOMOTIL [Concomitant]
     Dosage: 2 MG
     Route: 048
     Dates: start: 20070407, end: 20070422
  18. FLUCONAZOLE [Concomitant]
     Dosage: 200 MG
     Route: 042
     Dates: start: 20070409
  19. DAUNORUBICIN HCL [Suspect]
     Indication: ACUTE MYELOID LEUKAEMIA
     Dosage: 80 MG TOTAL DOSE ADMINISTERED
     Route: 042
     Dates: start: 20070330, end: 20070401

REACTIONS (2)
  - TORSADE DE POINTES [None]
  - VENTRICULAR FIBRILLATION [None]
